FAERS Safety Report 17707237 (Version 1)
Quarter: 2020Q2

REPORT INFORMATION
  Report Type: Spontaneous
  Country: DE (occurrence: DE)
  Receive Date: 20200424
  Receipt Date: 20200424
  Transmission Date: 20200714
  Serious: Yes (Disabling)
  Sender: FDA-Public Use
  Company Number: DE-MYLANLABS-2020M1041270

PATIENT
  Sex: Female

DRUGS (2)
  1. SUMATRIPTAN 50 MG FILM-COATED TABLET [Suspect]
     Active Substance: SUMATRIPTAN
     Indication: MIGRAINE
     Dosage: UNK, PRN (AS REQUIRED)
     Route: 048
     Dates: start: 202004
  2. L-THYROX [Concomitant]
     Active Substance: LEVOTHYROXINE SODIUM
     Dosage: UNK (PERMANENT TREATMENT)
     Route: 048

REACTIONS (7)
  - Restlessness [Not Recovered/Not Resolved]
  - Nausea [Not Recovered/Not Resolved]
  - Crying [Not Recovered/Not Resolved]
  - Vomiting [Not Recovered/Not Resolved]
  - Visual impairment [Not Recovered/Not Resolved]
  - Body temperature increased [Not Recovered/Not Resolved]
  - Anxiety [Not Recovered/Not Resolved]

NARRATIVE: CASE EVENT DATE: 20200416
